FAERS Safety Report 7580654-1 (Version None)
Quarter: 2011Q2

REPORT INFORMATION
  Report Type: 
  Country: None (occurrence: None)
  Receive Date: 20110629
  Receipt Date: 20110620
  Transmission Date: 20111010
  Serious: Yes (Death, Other)
  Sender: FDA-Public Use
  Company Number: JP-AMGEN-JPNCT2011032722

PATIENT
  Age: 55 Year
  Sex: Female
  Weight: 47 kg

DRUGS (12)
  1. FLUOROURACIL [Concomitant]
     Route: 041
     Dates: start: 20101101
  2. LEUCOVORIN CALCIUM [Concomitant]
     Indication: COLORECTAL CANCER
     Route: 041
     Dates: start: 20101101
  3. TOPOTECAN [Suspect]
     Indication: COLORECTAL CANCER
     Route: 041
     Dates: start: 20101101
  4. TOPOTECAN [Suspect]
     Route: 041
  5. ANTIHISTAMINES [Concomitant]
     Indication: PROPHYLAXIS
     Dosage: UNK
     Route: 065
  6. PANITUMUMAB [Suspect]
     Indication: COLORECTAL CANCER
     Dosage: 6 MG/KG, Q2WK
     Route: 041
     Dates: start: 20101101, end: 20110112
  7. CORTICOSTEROIDS [Concomitant]
     Indication: PROPHYLAXIS
     Dosage: UNK
     Route: 065
  8. DEPAS [Concomitant]
     Dosage: UNK
     Route: 048
  9. OXYCONTIN [Concomitant]
     Dosage: UNK
     Route: 048
  10. TOPOTECAN [Suspect]
     Route: 041
  11. FLUOROURACIL [Concomitant]
     Indication: COLORECTAL CANCER
     Route: 041
     Dates: start: 20101101
  12. JU-KAMA [Concomitant]
     Dosage: UNK
     Route: 048

REACTIONS (2)
  - DECREASED APPETITE [None]
  - COLORECTAL CANCER [None]
